FAERS Safety Report 18117024 (Version 2)
Quarter: 2022Q2

REPORT INFORMATION
  Report Type: Spontaneous
  Country: US (occurrence: US)
  Receive Date: 20200806
  Receipt Date: 20220627
  Transmission Date: 20220721
  Serious: Yes (Other)
  Sender: FDA-Public Use
  Company Number: US-SAARTEMIS-SAC202008030108

PATIENT
  Age: 75 Year
  Sex: Male

DRUGS (1)
  1. ZANTAC [Suspect]
     Active Substance: RANITIDINE HYDROCHLORIDE
     Indication: Dyspepsia
     Dosage: UNK
     Route: 065
     Dates: start: 198301, end: 201901

REACTIONS (3)
  - Renal cancer [Unknown]
  - Lung carcinoma cell type unspecified stage 0 [Unknown]
  - Prostate cancer stage 0 [Unknown]

NARRATIVE: CASE EVENT DATE: 20200101
